FAERS Safety Report 7878410-X (Version None)
Quarter: 2011Q4

REPORT INFORMATION
  Report Type: 
  Country: None (occurrence: None)
  Receive Date: 20111101
  Receipt Date: 20111022
  Transmission Date: 20120403
  Serious: Yes (Other)
  Sender: FDA-Public Use
  Company Number: DE-JNJFOC-20111010437

PATIENT
  Sex: Female

DRUGS (8)
  1. IBUPROFEN [Suspect]
     Indication: PRODUCT USED FOR UNKNOWN INDICATION
     Dosage: ONCE TOTAL
     Route: 048
     Dates: start: 20111022, end: 20111022
  2. PANTOPRAZOLE SODIUM [Suspect]
     Indication: PRODUCT USED FOR UNKNOWN INDICATION
     Dosage: ONCE TOTAL
     Route: 048
     Dates: start: 20111022, end: 20111022
  3. POTASSIUM [Suspect]
     Indication: PRODUCT USED FOR UNKNOWN INDICATION
     Dosage: ONCE TOTAL
     Route: 048
     Dates: start: 20111022, end: 20111022
  4. IBUPROFEN [Suspect]
     Route: 048
  5. ZOPICLON [Suspect]
     Indication: PRODUCT USED FOR UNKNOWN INDICATION
     Dosage: ONCE TOTAL
     Route: 048
     Dates: start: 20111022, end: 20111022
  6. TAXILAN [Suspect]
     Indication: PRODUCT USED FOR UNKNOWN INDICATION
     Dosage: ONCE TOTAL
     Route: 048
     Dates: start: 20111022, end: 20111022
  7. RISPERDAL [Suspect]
     Indication: PRODUCT USED FOR UNKNOWN INDICATION
     Dosage: ONCE TOTAL
     Route: 048
     Dates: start: 20111022, end: 20111022
  8. TRAMADOL HYDROCHLORIDE [Suspect]
     Indication: PRODUCT USED FOR UNKNOWN INDICATION
     Dosage: ONCE IN TOTAL
     Route: 048
     Dates: start: 20111022, end: 20111022

REACTIONS (1)
  - SUICIDE ATTEMPT [None]
